FAERS Safety Report 21705996 (Version 2)
Quarter: 2023Q1

REPORT INFORMATION
  Report Type: Spontaneous
  Country: US (occurrence: US)
  Receive Date: 20221209
  Receipt Date: 20230127
  Transmission Date: 20230418
  Serious: Yes (Other)
  Sender: FDA-Public Use
  Company Number: US-ELI_LILLY_AND_COMPANY-US202211015131

PATIENT
  Age: 26 Year
  Sex: Male
  Weight: 153.3 kg

DRUGS (5)
  1. OLANZAPINE [Suspect]
     Active Substance: OLANZAPINE
     Indication: Schizophrenia
     Dosage: 25 MG, UNKNOWN
     Route: 065
     Dates: start: 2022
  2. OLANZAPINE [Suspect]
     Active Substance: OLANZAPINE
     Dosage: 20 MG, DAILY, AT BEDTIME
     Route: 065
     Dates: start: 20220816, end: 202210
  3. OLANZAPINE [Suspect]
     Active Substance: OLANZAPINE
     Dosage: 15 MG, DAILY, AT BEDTIME
     Route: 065
     Dates: start: 202210, end: 20221109
  4. CAPLYTA [Suspect]
     Active Substance: LUMATEPERONE
     Indication: Schizophrenia
     Dosage: 10.5 MG, DAILY, AT BEDTIME
     Route: 048
     Dates: start: 20220816, end: 202210
  5. CAPLYTA [Suspect]
     Active Substance: LUMATEPERONE
     Dosage: 21 MG, UNKNOWN, AT BEDTIME
     Route: 048
     Dates: start: 202210, end: 20221121

REACTIONS (17)
  - Euphoric mood [Recovered/Resolved]
  - Hallucination, auditory [Not Recovered/Not Resolved]
  - Psychiatric decompensation [Not Recovered/Not Resolved]
  - Cognitive disorder [Recovered/Resolved]
  - Back pain [Unknown]
  - Irritability [Unknown]
  - Inappropriate affect [Not Recovered/Not Resolved]
  - Hypersomnia [Unknown]
  - Muscle spasms [Unknown]
  - Sedation [Unknown]
  - Weight increased [Not Recovered/Not Resolved]
  - Tardive dyskinesia [Recovered/Resolved]
  - Dyskinesia [Recovered/Resolved]
  - Fatigue [Unknown]
  - Behaviour disorder [Unknown]
  - Restlessness [Unknown]
  - Orthostatic hypotension [Unknown]
